FAERS Safety Report 7885248-6 (Version None)
Quarter: 2011Q4

REPORT INFORMATION
  Report Type: 
  Country: None (occurrence: None)
  Receive Date: 20111102
  Receipt Date: 20111024
  Transmission Date: 20120403
  Serious: Yes (Disabling)
  Sender: FDA-Public Use
  Company Number: JP-PFIZER INC-199859819PHANOV

PATIENT
  Age: 6 Year
  Sex: Male

DRUGS (2)
  1. GENOTROPIN [Suspect]
     Indication: DWARFISM
     Dosage: 1.0 IU, 1X/DAY
     Route: 058
     Dates: start: 19960611, end: 19971212
  2. THEODUR ^ELAN^ [Concomitant]
     Dosage: UNK
     Dates: start: 19961001, end: 19971212

REACTIONS (1)
  - BONE SARCOMA [None]
